APPROVED DRUG PRODUCT: NITROSTAT
Active Ingredient: NITROGLYCERIN
Strength: 5MG/ML
Dosage Form/Route: INJECTABLE;INJECTION
Application: N018588 | Product #002
Applicant: PARKE DAVIS DIV WARNER LAMBERT CO
Approved: Dec 23, 1983 | RLD: No | RS: No | Type: DISCN